FAERS Safety Report 16569266 (Version 1)
Quarter: 2019Q3

REPORT INFORMATION
  Report Type: Spontaneous
  Country: FR (occurrence: FR)
  Receive Date: 20190714
  Receipt Date: 20190714
  Transmission Date: 20191004
  Serious: Yes (Death)
  Sender: FDA-Public Use
  Company Number: FR-B.I. PHARMACEUTICALS,INC./RIDGEFIELD-2019-12-002207

PATIENT
  Age: 48 Year
  Sex: Male
  Weight: 90 kg

DRUGS (2)
  1. IRBESARTAN. [Concomitant]
     Active Substance: IRBESARTAN
     Indication: PRODUCT USED FOR UNKNOWN INDICATION
     Route: 065
  2. PRADAXA [Suspect]
     Active Substance: DABIGATRAN ETEXILATE MESYLATE
     Indication: ATRIAL FIBRILLATION
     Dosage: NON RENSEIGNEE
     Route: 048
     Dates: end: 20190612

REACTIONS (1)
  - Shock haemorrhagic [Fatal]

NARRATIVE: CASE EVENT DATE: 20190612
